FAERS Safety Report 9088959 (Version 1)
Quarter: 2013Q1

REPORT INFORMATION
  Report Type: Spontaneous
  Country: BR (occurrence: BR)
  Receive Date: 20130131
  Receipt Date: 20130131
  Transmission Date: 20140127
  Serious: Yes (Hospitalization, Other)
  Sender: FDA-Public Use
  Company Number: BR-PFIZER INC-2013028234

PATIENT
  Age: 59 Year
  Sex: Male
  Weight: 63 kg

DRUGS (6)
  1. XALATAN [Suspect]
     Indication: GLAUCOMA
     Dosage: 1 GTT IN EACH EYE, 1X/DAY BEFORE SLEEPING
     Route: 047
     Dates: start: 2003, end: 20121123
  2. XALACOM [Suspect]
     Indication: GLAUCOMA
     Dosage: 1 GTT IN EACH EYE, 1X/DAY BEFORE SLEEPING
     Route: 047
     Dates: start: 20121123
  3. AVODART [Concomitant]
     Indication: PROPHYLAXIS
     Dosage: UNK
     Dates: start: 2006
  4. DUOMO [Concomitant]
     Indication: PROPHYLAXIS
     Dosage: UNK
     Dates: start: 2006
  5. GLIFAGE [Concomitant]
     Indication: DIABETES MELLITUS MANAGEMENT
     Dosage: UNK
     Dates: start: 2011
  6. LIPITOR [Concomitant]
     Indication: BLOOD CHOLESTEROL INCREASED
     Dosage: 10 MG, 1X/DAY
     Dates: start: 2008

REACTIONS (6)
  - Eye disorder [Unknown]
  - Glaucoma [Unknown]
  - Drug ineffective [Unknown]
  - Prostatitis [Recovered/Resolved]
  - Osteoporosis [Unknown]
  - Drug ineffective [Unknown]
